FAERS Safety Report 6876473-1 (Version None)
Quarter: 2010Q3

REPORT INFORMATION
  Report Type: 
  Country: None (occurrence: None)
  Receive Date: 20100727
  Receipt Date: 20100712
  Transmission Date: 20110219
  Serious: Yes (Other)
  Sender: FDA-Public Use
  Company Number: PHHY2010US45365

PATIENT
  Sex: Female

DRUGS (1)
  1. DIOVAN [Suspect]
     Dosage: 160 MG

REACTIONS (4)
  - ATRIAL FIBRILLATION [None]
  - BLOOD URIC ACID INCREASED [None]
  - JOINT SWELLING [None]
  - OEDEMA PERIPHERAL [None]
